FAERS Safety Report 4733715-6 (Version None)
Quarter: 2005Q3

REPORT INFORMATION
  Report Type: 
  Country: None (occurrence: None)
  Receive Date: 20050729
  Receipt Date: 20050708
  Transmission Date: 20060218
  Serious: Yes (Hospitalization)
  Sender: FDA-Public Use
  Company Number: CA_050708425

PATIENT
  Age: 56 Year
  Sex: Female

DRUGS (11)
  1. FORTEO [Suspect]
     Indication: OSTEOPOROSIS
     Dosage: 20 UG/1 DAY
     Dates: start: 20050608
  2. ATENOL (ATENOLOL) [Concomitant]
  3. LIPITOR [Concomitant]
  4. TRIAZIDE (TRICHLORMETHIAZIDE) [Concomitant]
  5. CODEINE CONTIN [Concomitant]
  6. PLAVIX [Concomitant]
  7. POTASSIUM CHLORIDE [Concomitant]
  8. CELEXA [Concomitant]
  9. PANTALOC (PANTALOC) [Concomitant]
  10. EZETROL (EZETIMIBE) [Concomitant]
  11. SYNTHROID [Concomitant]

REACTIONS (1)
  - ANAPHYLACTIC REACTION [None]
